FAERS Safety Report 9972945 (Version 2)
Quarter: 2014Q2

REPORT INFORMATION
  Report Type: Spontaneous
  Country: US (occurrence: US)
  Receive Date: 20140306
  Receipt Date: 20140513
  Transmission Date: 20141212
  Serious: Yes (Death, Hospitalization)
  Sender: FDA-Public Use
  Company Number: US-GLAXOSMITHKLINE-A1062540A

PATIENT
  Age: 59 Year
  Sex: Male
  Weight: 89.5 kg

DRUGS (4)
  1. ARZERRA [Suspect]
     Indication: LYMPHOMA
     Dosage: 300MG UNKNOWN
     Route: 042
     Dates: start: 201312
  2. DECADRON IV [Concomitant]
  3. TYLENOL [Concomitant]
  4. BENADRYL [Concomitant]

REACTIONS (5)
  - Lymphoma [Fatal]
  - Neutropenia [Unknown]
  - Pyrexia [Unknown]
  - Sepsis [Unknown]
  - Anaemia [Unknown]
